FAERS Safety Report 4849073-2 (Version None)
Quarter: 2005Q4

REPORT INFORMATION
  Report Type: 
  Country: None (occurrence: None)
  Receive Date: 20051209
  Receipt Date: 20051129
  Transmission Date: 20060501
  Serious: Yes (Hospitalization)
  Sender: FDA-Public Use
  Company Number: US-BRISTOL-MYERS SQUIBB COMPANY-13197637

PATIENT
  Age: 57 Year
  Sex: Male
  Weight: 75 kg

DRUGS (9)
  1. COUMADIN [Suspect]
     Dosage: DOSE REGIMEN:  2.5 MILLIGRAMS 5 DAYS A WEEK AND 7.5 MILLIGRAMS 2 DAYS A WEEK
  2. OMEGA 3 FATTY ACID [Suspect]
  3. PLAVIX [Concomitant]
  4. LOPRESSOR [Concomitant]
  5. ASPIRIN [Concomitant]
  6. NIASPAN [Concomitant]
  7. ZOCOR [Concomitant]
  8. BENICAR [Concomitant]
  9. ISOSORBIDE MONONITRATE [Concomitant]

REACTIONS (2)
  - CORONARY ARTERIAL STENT INSERTION [None]
  - INTERNATIONAL NORMALISED RATIO ABNORMAL [None]
